FAERS Safety Report 6693485-1 (Version None)
Quarter: 2010Q2

REPORT INFORMATION
  Report Type: 
  Country: None (occurrence: None)
  Receive Date: 20100423
  Receipt Date: 20100415
  Transmission Date: 20101027
  Serious: No
  Sender: FDA-Public Use
  Company Number: US-BIOGENIDEC-2010BI011457

PATIENT
  Sex: Male

DRUGS (2)
  1. TYSABRI [Suspect]
     Indication: MULTIPLE SCLEROSIS
     Route: 042
     Dates: start: 20050223, end: 20050223
  2. TYSABRI [Suspect]
     Route: 042
     Dates: start: 20100202, end: 20100302

REACTIONS (5)
  - BACK PAIN [None]
  - DRUG SPECIFIC ANTIBODY PRESENT [None]
  - HOT FLUSH [None]
  - INFUSION RELATED REACTION [None]
  - MUSCLE SPASMS [None]
